FAERS Safety Report 5629450-2 (Version None)
Quarter: 2008Q1

REPORT INFORMATION
  Report Type: 
  Country: None (occurrence: None)
  Receive Date: 20080215
  Receipt Date: 20080215
  Transmission Date: 20080703
  Serious: Yes (Other)
  Sender: FDA-Public Use
  Company Number: None

PATIENT
  Age: 62 Year
  Sex: Male
  Weight: 94.3482 kg

DRUGS (4)
  1. ENBREL [Suspect]
     Indication: LUNG ADENOCARCINOMA
     Dosage: 50 MG Q WKS
  2. METHOTREXATE [Suspect]
     Dosage: 10 MG A WK
     Dates: end: 20020101
  3. CLOLEBID [Concomitant]
  4. MIACHIN [Concomitant]

REACTIONS (1)
  - NEOPLASM MALIGNANT [None]
